FAERS Safety Report 6680823-9 (Version None)
Quarter: 2010Q2

REPORT INFORMATION
  Report Type: 
  Country: None (occurrence: None)
  Receive Date: 20100414
  Receipt Date: 20100409
  Transmission Date: 20101027
  Serious: Yes (Hospitalization)
  Sender: FDA-Public Use
  Company Number: CA-ASTRAZENECA-2010SE15704

PATIENT

DRUGS (2)
  1. SEROQUEL XR [Suspect]
     Route: 048
  2. EFFEXOR [Concomitant]
     Route: 065

REACTIONS (1)
  - ALCOHOLISM [None]
